FAERS Safety Report 18814914 (Version 1)
Quarter: 2021Q1

REPORT INFORMATION
  Report Type: Spontaneous
  Country: US (occurrence: US)
  Receive Date: 20210130
  Receipt Date: 20210130
  Transmission Date: 20210419
  Serious: Yes (Disabling)
  Sender: FDA-Public Use
  Company Number: None

PATIENT
  Age: 33 Year
  Sex: Female
  Weight: 81 kg

DRUGS (9)
  1. VIT D [Concomitant]
     Active Substance: VITAMIN D NOS
  2. GASTROCROM [Concomitant]
     Active Substance: CROMOLYN SODIUM
  3. PEPCID [Concomitant]
     Active Substance: FAMOTIDINE
  4. PRENATAL VITAMIN [Concomitant]
     Active Substance: VITAMINS
  5. CALCIUM [Concomitant]
     Active Substance: CALCIUM
  6. YAZ BIRTH CONTROL [Concomitant]
  7. HUMIRA [Suspect]
     Active Substance: ADALIMUMAB
     Indication: RHEUMATOID ARTHRITIS
     Dates: start: 20191112, end: 20200615
  8. ZYRTEC [Concomitant]
     Active Substance: CETIRIZINE HYDROCHLORIDE
  9. MAGNESIUM ZINC [Concomitant]

REACTIONS (2)
  - Psoriasis [None]
  - Alopecia [None]

NARRATIVE: CASE EVENT DATE: 20200608
